FAERS Safety Report 25887012 (Version 3)
Quarter: 2025Q4

REPORT INFORMATION
  Report Type: Report from Study
  Country: US (occurrence: US)
  Receive Date: 20251006
  Receipt Date: 20251017
  Transmission Date: 20260117
  Serious: Yes (Hospitalization)
  Sender: SANOFI AVENTIS
  Company Number: US-SA-2025SA290329

PATIENT
  Age: 46 Year
  Sex: Male

DRUGS (8)
  1. CAPLACIZUMAB-YHDP [Suspect]
     Active Substance: CAPLACIZUMAB-YHDP
     Indication: Thrombotic thrombocytopenic purpura
     Dosage: 11 MG, QD
     Route: 058
     Dates: start: 20250914, end: 202509
  2. CAPLACIZUMAB-YHDP [Suspect]
     Active Substance: CAPLACIZUMAB-YHDP
     Indication: Thrombotic thrombocytopenic purpura
     Dosage: 11 MG, QD
     Route: 058
     Dates: start: 20250914, end: 202509
  3. CAPLACIZUMAB-YHDP [Suspect]
     Active Substance: CAPLACIZUMAB-YHDP
     Indication: Thrombotic thrombocytopenic purpura
     Dosage: 11 MG, QD
     Route: 058
     Dates: start: 20250914, end: 202509
  4. CAPLACIZUMAB-YHDP [Suspect]
     Active Substance: CAPLACIZUMAB-YHDP
     Indication: Thrombotic thrombocytopenic purpura
     Dosage: 11 MG, QD
     Route: 058
     Dates: start: 20250914, end: 202509
  5. CAPLACIZUMAB-YHDP [Suspect]
     Active Substance: CAPLACIZUMAB-YHDP
     Dosage: 11 MG
     Route: 058
     Dates: start: 202509, end: 20251002
  6. CAPLACIZUMAB-YHDP [Suspect]
     Active Substance: CAPLACIZUMAB-YHDP
     Dosage: 11 MG
     Route: 058
     Dates: start: 202509, end: 20251002
  7. CAPLACIZUMAB-YHDP [Suspect]
     Active Substance: CAPLACIZUMAB-YHDP
     Dosage: 11 MG
     Route: 058
     Dates: start: 202509, end: 20251002
  8. CAPLACIZUMAB-YHDP [Suspect]
     Active Substance: CAPLACIZUMAB-YHDP
     Dosage: 11 MG
     Route: 058
     Dates: start: 202509, end: 20251002

REACTIONS (2)
  - Clavicle fracture [Recovering/Resolving]
  - Inappropriate schedule of product administration [Unknown]

NARRATIVE: CASE EVENT DATE: 20250101
